FAERS Safety Report 11638899 (Version 1)
Quarter: 2015Q4

REPORT INFORMATION
  Report Type: Spontaneous
  Country: GB (occurrence: GB)
  Receive Date: 20151018
  Receipt Date: 20151018
  Transmission Date: 20160304
  Serious: Yes (Other)
  Sender: FDA-Public Use
  Company Number: GB-DEXPHARM-20151946

PATIENT
  Age: 50 Year
  Sex: Female
  Weight: 77.11 kg

DRUGS (2)
  1. BISOPROLOL [Concomitant]
     Active Substance: BISOPROLOL
  2. OMEPRAZOLE. [Suspect]
     Active Substance: OMEPRAZOLE
     Indication: GASTROOESOPHAGEAL REFLUX DISEASE
     Route: 048
     Dates: start: 201507, end: 201509

REACTIONS (7)
  - Dizziness [Recovering/Resolving]
  - Abnormal dreams [Recovered/Resolved]
  - Anxiety [Recovering/Resolving]
  - Palpitations [Unknown]
  - Agitation [Recovering/Resolving]
  - Panic attack [Recovered/Resolved]
  - Tremor [Recovered/Resolved]

NARRATIVE: CASE EVENT DATE: 201507
